FAERS Safety Report 6535992-8 (Version None)
Quarter: 2010Q1

REPORT INFORMATION
  Report Type: 
  Country: None (occurrence: None)
  Receive Date: 20100105
  Receipt Date: 20091223
  Transmission Date: 20100710
  Serious: Yes (Hospitalization, Other)
  Sender: FDA-Public Use
  Company Number: POMP-1000810

PATIENT
  Age: 32 Year
  Sex: Female
  Weight: 55 kg

DRUGS (7)
  1. MYOZYME [Suspect]
     Indication: GLYCOGEN STORAGE DISEASE TYPE II
     Dosage: 20 MG;KG, INTRAVENOUS
     Route: 042
     Dates: start: 20060901
  2. ATACAND (CANDESARTAN CILEXETIL, HYDROCHLOROTHIAZIDE) [Concomitant]
  3. OMEPRAZOLE [Concomitant]
  4. ACETYLSALICYLIC ACID SRT [Concomitant]
  5. PAROXETIN (PAROXETINE HYDROCHLORIDE) [Concomitant]
  6. FENTANYL CITRATE [Concomitant]
  7. ACC (ACETYLCYSTEINE SODIUM) [Concomitant]

REACTIONS (4)
  - BRONCHITIS BACTERIAL [None]
  - FOREIGN BODY [None]
  - HYPOKALAEMIA [None]
  - PNEUMONIA ASPIRATION [None]
